FAERS Safety Report 11393651 (Version 1)
Quarter: 2015Q3

REPORT INFORMATION
  Report Type: Spontaneous
  Country: FR (occurrence: FR)
  Receive Date: 20150819
  Receipt Date: 20150819
  Transmission Date: 20151125
  Serious: Yes (Hospitalization)
  Sender: FDA-Public Use
  Company Number: FR-ROCHE-1620375

PATIENT
  Age: 61 Year
  Sex: Male

DRUGS (11)
  1. LOVENOX [Concomitant]
     Active Substance: ENOXAPARIN SODIUM
     Route: 058
     Dates: start: 20150205, end: 20150215
  2. IMOVANE [Concomitant]
     Active Substance: ZOPICLONE
     Dosage: AT BED TIME.
     Route: 065
  3. SPASFON (FRANCE) [Concomitant]
     Active Substance: PHLOROGLUCINOL
     Dosage: 1 DOSE IN THE EVENING
     Route: 048
  4. RISPERDAL [Concomitant]
     Active Substance: RISPERIDONE
     Route: 048
  5. FORLAX [Concomitant]
     Active Substance: POLYETHYLENE GLYCOL 4000
     Route: 048
     Dates: start: 20150206, end: 20150216
  6. ARTANE [Concomitant]
     Active Substance: TRIHEXYPHENIDYL HYDROCHLORIDE
     Route: 048
  7. VALIUM [Suspect]
     Active Substance: DIAZEPAM
     Indication: PRODUCT USED FOR UNKNOWN INDICATION
     Dosage: MOST RECENT DOSE ON 10/FEB/2015,
     Route: 048
     Dates: start: 20150206
  8. XATRAL [Concomitant]
     Active Substance: ALFUZOSIN
     Route: 048
     Dates: start: 20150205, end: 20150215
  9. LAMICTAL [Concomitant]
     Active Substance: LAMOTRIGINE
     Dosage: 1 DOSE IN THE MORNING AND 1 DOSE IN THE EVENING
     Route: 048
  10. VALIUM [Suspect]
     Active Substance: DIAZEPAM
     Route: 048
     Dates: start: 20150216
  11. ZYRTEC [Concomitant]
     Active Substance: CETIRIZINE HYDROCHLORIDE
     Route: 065
     Dates: start: 20150211, end: 20150215

REACTIONS (6)
  - Confusional state [Recovered/Resolved]
  - Staring [Recovered/Resolved]
  - Speech disorder [Recovered/Resolved]
  - Withdrawal syndrome [Unknown]
  - Logorrhoea [Unknown]
  - Echolalia [Recovered/Resolved]

NARRATIVE: CASE EVENT DATE: 20150210
